FAERS Safety Report 25950961 (Version 1)
Quarter: 2025Q4

REPORT INFORMATION
  Report Type: Spontaneous
  Country: US (occurrence: US)
  Receive Date: 20251023
  Receipt Date: 20251023
  Transmission Date: 20260118
  Serious: No
  Sender: KARYOPHARM THERAPEUTICS
  Company Number: US-KARYOPHARM-2025KPT100844

PATIENT

DRUGS (11)
  1. SELINEXOR [Suspect]
     Active Substance: SELINEXOR
     Indication: Brain neoplasm malignant
     Dosage: 60 MG DAYS 8 AND 15
     Route: 048
  2. ELIQUIS [Concomitant]
     Active Substance: APIXABAN
  3. GRANISETRON HYDROCHLORIDE [Concomitant]
     Active Substance: GRANISETRON HYDROCHLORIDE
  4. KEPPRA [Concomitant]
     Active Substance: LEVETIRACETAM
  5. LEVETIRACETAM [Concomitant]
     Active Substance: LEVETIRACETAM
  6. LORAZEPAM [Concomitant]
     Active Substance: LORAZEPAM
  7. SULFAMETHOXAZOLE\TRIMETHOPRIM [Concomitant]
     Active Substance: SULFAMETHOXAZOLE\TRIMETHOPRIM
  8. TEMOZOLOMIDE [Concomitant]
     Active Substance: TEMOZOLOMIDE
  9. TRETINOIN [Concomitant]
     Active Substance: TRETINOIN
  10. VIMPAT [Concomitant]
     Active Substance: LACOSAMIDE
  11. ZOFRAN [Concomitant]
     Active Substance: ONDANSETRON HYDROCHLORIDE

REACTIONS (2)
  - Off label use [Unknown]
  - No adverse event [Unknown]
